FAERS Safety Report 12365225 (Version 2)
Quarter: 2016Q4

REPORT INFORMATION
  Report Type: Report from Study
  Country: US (occurrence: US)
  Receive Date: 20160513
  Receipt Date: 20161126
  Transmission Date: 20170207
  Serious: Yes (Hospitalization, Other)
  Sender: FDA-Public Use
  Company Number: US-AMGEN-USASL2016059297

PATIENT
  Age: 80 Year
  Sex: Male

DRUGS (4)
  1. LOSARTAN. [Concomitant]
     Active Substance: LOSARTAN
  2. NPLATE [Suspect]
     Active Substance: ROMIPLOSTIM
     Indication: IMMUNE THROMBOCYTOPENIC PURPURA
     Dosage: UNK
     Route: 065
     Dates: start: 20151009
  3. METOPROLOL. [Concomitant]
     Active Substance: METOPROLOL
  4. LIPITOR [Concomitant]
     Active Substance: ATORVASTATIN CALCIUM

REACTIONS (10)
  - Gastric cancer stage IV [Unknown]
  - Central venous catheterisation [Unknown]
  - Activities of daily living impaired [Unknown]
  - Arterial occlusive disease [Unknown]
  - Chest pain [Unknown]
  - Fatigue [Unknown]
  - Stomach mass [Unknown]
  - Platelet count decreased [Unknown]
  - Nausea [Unknown]
  - Abdominal discomfort [Unknown]
